FAERS Safety Report 11092855 (Version 1)
Quarter: 2015Q2

REPORT INFORMATION
  Report Type: Spontaneous
  Country: TR (occurrence: None)
  Receive Date: 20150504
  Receipt Date: 20150504
  Transmission Date: 20150821
  Serious: Yes (Life-Threatening, Hospitalization, Other)
  Sender: FDA-Public Use
  Company Number: 2015EDG00019

PATIENT
  Age: 28 Year
  Sex: Female

DRUGS (1)
  1. BUPROPION (BUPROPION) UNKNOWN [Suspect]
     Active Substance: BUPROPION
     Indication: MAJOR DEPRESSION
     Dosage: 150 MG/G, UNK

REACTIONS (6)
  - Toxicity to various agents [None]
  - Supraventricular tachycardia [None]
  - Intentional overdose [None]
  - Suicide attempt [None]
  - Depression [None]
  - Anxiety [None]
